FAERS Safety Report 5723722-9 (Version None)
Quarter: 2008Q2

REPORT INFORMATION
  Report Type: 
  Country: None (occurrence: None)
  Receive Date: 20080430
  Receipt Date: 20080424
  Transmission Date: 20081010
  Serious: Yes (Hospitalization, Disabling)
  Sender: FDA-Public Use
  Company Number: US-ASTRAZENECA-2008UW08107

PATIENT
  Age: 74 Year
  Sex: Male

DRUGS (4)
  1. CRESTOR [Suspect]
     Route: 048
     Dates: start: 20080115, end: 20080201
  2. ASPIRIN [Concomitant]
  3. COMBIVENT [Concomitant]
  4. PRILOSEC [Concomitant]

REACTIONS (2)
  - RHABDOMYOLYSIS [None]
  - VIRAL INFECTION [None]
